FAERS Safety Report 5779258-2 (Version None)
Quarter: 2008Q2

REPORT INFORMATION
  Report Type: 
  Country: None (occurrence: None)
  Receive Date: 20080619
  Receipt Date: 20080613
  Transmission Date: 20081010
  Serious: Yes (Other)
  Sender: FDA-Public Use
  Company Number: NL-JNJFOC-20080603621

PATIENT
  Sex: Male
  Weight: 73 kg

DRUGS (2)
  1. PALIPERIDONE [Suspect]
  2. PALIPERIDONE [Suspect]
     Indication: SCHIZOPHRENIA

REACTIONS (1)
  - AUTONOMIC NERVOUS SYSTEM IMBALANCE [None]
